FAERS Safety Report 8820464 (Version 4)
Quarter: 2013Q3

REPORT INFORMATION
  Report Type: Spontaneous
  Country: US (occurrence: US)
  Receive Date: 20121002
  Receipt Date: 20130920
  Transmission Date: 20140515
  Serious: Yes (Hospitalization, Disabling, Other)
  Sender: FDA-Public Use
  Company Number: US-MERCK-1209USA010299

PATIENT
  Sex: Female
  Weight: 59.86 kg

DRUGS (13)
  1. FOSAMAX [Suspect]
     Indication: OSTEOPOROSIS
     Dosage: UNK
     Route: 048
     Dates: start: 19950207
  2. FOSAMAX [Suspect]
     Dosage: 70 MG, QW
     Route: 048
     Dates: start: 20071008, end: 20080316
  3. FOSAMAX PLUS D [Suspect]
     Indication: OSTEOPOROSIS
     Dosage: 70MG-2800 IU
     Route: 048
     Dates: start: 20060802, end: 20070708
  4. ALENDRONATE SODIUM [Suspect]
     Indication: OSTEOPOROSIS
     Dosage: 70 MG, UNK
     Route: 048
     Dates: start: 20080627, end: 20110205
  5. OMEPRAZOLE [Suspect]
     Dosage: UNK
     Dates: start: 2009, end: 2009
  6. CALCIUM (UNSPECIFIED) [Concomitant]
     Dosage: 1000-1500 MG
     Dates: start: 1997
  7. VITAMIN D (UNSPECIFIED) [Concomitant]
     Dosage: 800 IU, UNK
     Dates: start: 1997
  8. VITAMINS (UNSPECIFIED) [Concomitant]
     Dosage: UNK UNK, QD
     Dates: start: 1997
  9. PREDNISONE [Concomitant]
     Indication: HYPERSENSITIVITY
     Dosage: UNK
     Dates: start: 2008
  10. HORMONES (UNSPECIFIED) [Concomitant]
     Dosage: UNK
     Dates: start: 1989, end: 2003
  11. VERAMYST [Concomitant]
     Indication: HYPERSENSITIVITY
     Dosage: UNK
     Dates: start: 2007, end: 2012
  12. CLARINEX (DESLORATADINE) [Concomitant]
     Indication: HYPERSENSITIVITY
  13. OCEAN [Concomitant]
     Indication: HYPERSENSITIVITY

REACTIONS (27)
  - Intramedullary rod insertion [Unknown]
  - Intramedullary rod insertion [Unknown]
  - Ovarian cystectomy [Unknown]
  - Colectomy [Unknown]
  - Tonsillectomy [Unknown]
  - Oral cavity neoplasm surgery [Unknown]
  - Tibia fracture [Unknown]
  - Low turnover osteopathy [Not Recovered/Not Resolved]
  - Joint arthroplasty [Unknown]
  - Femur fracture [Recovered/Resolved]
  - Femur fracture [Recovered/Resolved]
  - Osteopenia [Unknown]
  - Body height decreased [Unknown]
  - Tooth abscess [Unknown]
  - Sinusitis [Recovered/Resolved]
  - Tendonitis [Unknown]
  - Osteoarthritis [Unknown]
  - Tenosynovitis stenosans [Unknown]
  - Bone disorder [Unknown]
  - Large intestinal obstruction [Unknown]
  - Haemorrhagic anaemia [Unknown]
  - Anxiety [Unknown]
  - Bursitis [Unknown]
  - Dizziness [Recovering/Resolving]
  - Constipation [Unknown]
  - Drug ineffective [Unknown]
  - Gastrooesophageal reflux disease [Unknown]
